FAERS Safety Report 5270737-3 (Version None)
Quarter: 2007Q1

REPORT INFORMATION
  Report Type: 
  Country: None (occurrence: None)
  Receive Date: 20070319
  Receipt Date: 20070319
  Transmission Date: 20070707
  Serious: Yes (Other)
  Sender: FDA-Public Use
  Company Number: None

PATIENT
  Age: 58 Year
  Sex: Female
  Weight: 99.7913 kg

DRUGS (1)
  1. AMBIEN [Suspect]
     Indication: INSOMNIA
     Dosage: 10MG  ONE AT BEDTIME  PO
     Route: 048
     Dates: start: 20051001, end: 20061001

REACTIONS (5)
  - ABNORMAL BEHAVIOUR [None]
  - ABNORMAL SLEEP-RELATED EVENT [None]
  - DRUG ABUSER [None]
  - DRUG DEPENDENCE [None]
  - OBSESSIVE-COMPULSIVE DISORDER [None]
